FAERS Safety Report 10358017 (Version 3)
Quarter: 2016Q1

REPORT INFORMATION
  Report Type: Spontaneous
  Country: AT (occurrence: AT)
  Receive Date: 20140801
  Receipt Date: 20160330
  Transmission Date: 20160525
  Serious: Yes (Life-Threatening, Hospitalization)
  Sender: FDA-Public Use
  Company Number: AT-BAYER-2014-111445

PATIENT
  Age: 45 Year
  Sex: Female
  Weight: 108 kg

DRUGS (2)
  1. EUTHYROX [Concomitant]
     Active Substance: LEVOTHYROXINE SODIUM
  2. YASMIN [Suspect]
     Active Substance: DROSPIRENONE\ETHINYL ESTRADIOL
     Dosage: UNK
     Route: 048
     Dates: end: 201207

REACTIONS (15)
  - Sleep disorder [Recovered/Resolved]
  - Atrial fibrillation [None]
  - Syncope [None]
  - Fatigue [None]
  - Dyspnoea exertional [None]
  - Fear [Recovered/Resolved]
  - Pain [None]
  - Post-tussive vomiting [None]
  - Pulmonary embolism [None]
  - Dyspnoea [None]
  - Presyncope [None]
  - Cough [None]
  - Tachypnoea [None]
  - Gait disturbance [Recovered/Resolved]
  - General physical health deterioration [Recovered/Resolved]

NARRATIVE: CASE EVENT DATE: 200903
